FAERS Safety Report 14698369 (Version 3)
Quarter: 2018Q4

REPORT INFORMATION
  Report Type: Spontaneous
  Country: IN (occurrence: IN)
  Receive Date: 20180330
  Receipt Date: 20181113
  Transmission Date: 20190204
  Serious: Yes (Life-Threatening, Hospitalization, Other)
  Sender: FDA-Public Use
  Company Number: IN-CIPLA LTD.-2018IN13258

PATIENT

DRUGS (1)
  1. AMLODIPINE [Suspect]
     Active Substance: AMLODIPINE BESYLATE
     Dosage: 150 MG, (30 TABLETS)
     Route: 048

REACTIONS (11)
  - Leukocytosis [Recovered/Resolved]
  - Hypotension [Recovered/Resolved]
  - Intentional overdose [Unknown]
  - Anaemia [Recovered/Resolved]
  - Toxicity to various agents [Recovered/Resolved]
  - Tachypnoea [Recovered/Resolved]
  - Blood creatine increased [Recovered/Resolved]
  - Distributive shock [Recovered/Resolved]
  - Blood potassium decreased [Recovered/Resolved]
  - Cardiogenic shock [Recovered/Resolved]
  - Suicide attempt [Unknown]
